FAERS Safety Report 14979755 (Version 1)
Quarter: 2018Q2

REPORT INFORMATION
  Report Type: Spontaneous
  Country: US (occurrence: US)
  Receive Date: 20180606
  Receipt Date: 20180606
  Transmission Date: 20180711
  Serious: Yes (Other)
  Sender: FDA-Public Use
  Company Number: US-PFIZER INC-2018229015

PATIENT
  Sex: Male

DRUGS (1)
  1. RAPAMUNE [Suspect]
     Active Substance: SIROLIMUS
     Indication: BONE MARROW TRANSPLANT REJECTION
     Dosage: UNK

REACTIONS (7)
  - Gastrointestinal disorder [Unknown]
  - Product use in unapproved indication [Unknown]
  - Dry mouth [Recovered/Resolved]
  - Graft versus host disease in lung [Unknown]
  - Dry eye [Unknown]
  - Tooth loss [Unknown]
  - Dental caries [Unknown]

NARRATIVE: CASE EVENT DATE: 2014
